FAERS Safety Report 24118421 (Version 1)
Quarter: 2024Q3

REPORT INFORMATION
  Report Type: Report from Study
  Country: US (occurrence: None)
  Receive Date: 20240722
  Receipt Date: 20240722
  Transmission Date: 20241017
  Serious: Yes (Other)
  Sender: ASTRAZENECA
  Company Number: 2022A248056

PATIENT
  Sex: Female

DRUGS (9)
  1. LYNPARZA [Suspect]
     Active Substance: OLAPARIB
     Indication: Breast cancer female
     Route: 048
     Dates: start: 20200622
  2. VITAMIN B COMPLEX [Concomitant]
     Active Substance: CYANOCOBALAMIN\DEXPANTHENOL\NIACINAMIDE\PYRIDOXINE HYDROCHLORIDE\RIBOFLAVIN 5^-PHOSPHATE SODIUM\THIA
  3. VITAMIN D [Concomitant]
     Active Substance: VITAMIN D NOS
  4. ALPRAZOLAM [Concomitant]
     Active Substance: ALPRAZOLAM
  5. VITAMIN B-100 COMPLEX [Concomitant]
  6. CLARITIN [Concomitant]
     Active Substance: LORATADINE
  7. IMMUNE SUPPORT [Concomitant]
  8. ALBUTEROL SULFATE [Concomitant]
     Active Substance: ALBUTEROL SULFATE
  9. CALCIUM\CHOLECALCIFEROL [Concomitant]
     Active Substance: CALCIUM\CHOLECALCIFEROL

REACTIONS (1)
  - Transient ischaemic attack [Unknown]
